FAERS Safety Report 6855519-0 (Version None)
Quarter: 2010Q3

REPORT INFORMATION
  Report Type: 
  Country: None (occurrence: None)
  Receive Date: 20100719
  Receipt Date: 20100707
  Transmission Date: 20110219
  Serious: No
  Sender: FDA-Public Use
  Company Number: US-JNJFOC-20100702616

PATIENT
  Sex: Male
  Weight: 90.72 kg

DRUGS (1)
  1. SANDOZ FENTANYL TRANSDERMAL SYSTEM [Suspect]
     Indication: PAIN
     Route: 062

REACTIONS (4)
  - DRUG ADMINISTERED AT INAPPROPRIATE SITE [None]
  - FEELING ABNORMAL [None]
  - FEELING JITTERY [None]
  - NAUSEA [None]
